FAERS Safety Report 8559571-6 (Version None)
Quarter: 2012Q3

REPORT INFORMATION
  Report Type: 
  Country: None (occurrence: None)
  Receive Date: 20120802
  Receipt Date: 20120724
  Transmission Date: 20120928
  Serious: Yes (Other)
  Sender: FDA-Public Use
  Company Number: US-SANOFI-AVENTIS-2012SA052779

PATIENT
  Age: 57 Year
  Sex: Female

DRUGS (9)
  1. ASPIRIN [Suspect]
  2. ALPRAZOLAM [Concomitant]
     Indication: PSYCHOTHERAPY
  3. PLAVIX [Suspect]
  4. INTERFERON BETA NOS [Suspect]
     Indication: MULTIPLE SCLEROSIS
     Dates: start: 20031217
  5. VALIUM [Concomitant]
  6. PRINZIDE [Concomitant]
  7. ATENOLOL [Suspect]
  8. BUPROPION HCL [Concomitant]
     Indication: PSYCHOTHERAPY
  9. PROPRANOLOL [Suspect]

REACTIONS (8)
  - FALL [None]
  - HEAD INJURY [None]
  - HEADACHE [None]
  - CEREBRAL ISCHAEMIA [None]
  - LACUNAR INFARCTION [None]
  - NAUSEA [None]
  - GAIT DISTURBANCE [None]
  - DYSGRAPHIA [None]
